FAERS Safety Report 8988606 (Version 6)
Quarter: 2013Q2

REPORT INFORMATION
  Report Type: Spontaneous
  Country: JP (occurrence: JP)
  Receive Date: 20121228
  Receipt Date: 20130416
  Transmission Date: 20140414
  Serious: Yes (Other)
  Sender: FDA-Public Use
  Company Number: JP-PFIZER INC-2012323928

PATIENT
  Age: 35 Year
  Sex: Male
  Weight: 51 kg

DRUGS (9)
  1. BENEFIX [Suspect]
     Dosage: UNK
     Route: 042
     Dates: end: 201210
  2. FEIBA [Suspect]
     Indication: FACTOR IX DEFICIENCY
     Dosage: 2000-3000 UNITS
     Route: 042
     Dates: start: 201110
  3. CERCINE [Concomitant]
     Dosage: UNK
  4. LENDORMIN [Concomitant]
     Dosage: UNK
  5. REFLEX (MIRTAZAPINE) [Concomitant]
     Dosage: UNK
  6. ISENTRESS [Concomitant]
     Dosage: UNK
  7. RETROVIR [Concomitant]
     Dosage: UNK
  8. EPIVIR [Concomitant]
     Dosage: UNK
  9. CATLEP [Concomitant]
     Indication: FACTOR IX DEFICIENCY
     Dosage: UNK

REACTIONS (1)
  - Factor IX inhibition [Not Recovered/Not Resolved]
